FAERS Safety Report 10754153 (Version 3)
Quarter: 2020Q2

REPORT INFORMATION
  Report Type: Other
  Country: DE (occurrence: DE)
  Receive Date: 20150202
  Receipt Date: 20200527
  Transmission Date: 20200713
  Serious: Yes (Hospitalization, Other)
  Sender: FDA-Public Use
  Company Number: DE-LUPIN PHARMACEUTICALS INC.-E2B_00003098

PATIENT
  Age: 1 Day
  Sex: Female
  Weight: 2.4 kg

DRUGS (6)
  1. LEVETIRACETAM. [Suspect]
     Active Substance: LEVETIRACETAM
     Indication: EPILEPSY
     Dosage: 1500 MILLIGRAM, QD ((0 - 34 GESTATIONAL WEEK))
     Route: 064
     Dates: start: 20140402, end: 20141126
  2. CLOBAZAM. [Suspect]
     Active Substance: CLOBAZAM
     Indication: EPILEPSY
     Dosage: 40 MILLIGRAM, QD (0 - 34 GESTATIONAL WEEK)
     Route: 064
     Dates: start: 20140402, end: 20141126
  3. BETAMETHASONE. [Concomitant]
     Active Substance: BETAMETHASONE
     Indication: MATERNAL THERAPY TO ENHANCE FOETAL LUNG MATURITY
     Dosage: UNK  (3RD TRIMESTER)
     Route: 064
     Dates: start: 2014
  4. PHENYTOIN. [Suspect]
     Active Substance: PHENYTOIN
     Indication: EPILEPSY
     Dosage: 400 MILLIGRAM, QD (0 - 34 GESTATIONAL WEEK)
     Route: 064
     Dates: start: 20140402, end: 20141126
  5. VALPROAT [Suspect]
     Active Substance: VALPROATE SODIUM
     Indication: EPILEPSY
     Dosage: 500 MILLIGRAM, QD, ((0 - 34 GESTATIONAL WEEK))
     Route: 064
     Dates: start: 20140402, end: 20141126
  6. CLONAZEPAM. [Suspect]
     Active Substance: CLONAZEPAM
     Indication: EPILEPSY
     Dosage: 40 MILLIGRAM, QD
     Route: 064
     Dates: start: 20140402, end: 20141126

REACTIONS (7)
  - Foetal exposure during pregnancy [Unknown]
  - Bradycardia neonatal [Recovered/Resolved]
  - Low birth weight baby [Unknown]
  - Selective eating disorder [Recovered/Resolved]
  - Respiratory disorder neonatal [Recovered/Resolved]
  - Weight gain poor [Unknown]
  - Premature baby [Unknown]

NARRATIVE: CASE EVENT DATE: 2014
